FAERS Safety Report 25900086 (Version 1)
Quarter: 2025Q4

REPORT INFORMATION
  Report Type: Report from Study
  Country: US (occurrence: US)
  Receive Date: 20251009
  Receipt Date: 20251009
  Transmission Date: 20260118
  Serious: Yes (Other)
  Sender: ABBVIE
  Company Number: US-ABBVIE-6491012

PATIENT
  Sex: Female

DRUGS (1)
  1. HUMIRA [Suspect]
     Active Substance: ADALIMUMAB
     Indication: Product used for unknown indication
     Route: 058
     Dates: start: 20240301

REACTIONS (5)
  - Gallbladder disorder [Recovered/Resolved]
  - Intervertebral disc protrusion [Recovered/Resolved]
  - Drug hypersensitivity [Unknown]
  - Nervous system disorder [Recovered/Resolved]
  - Tooth infection [Recovered/Resolved]
